FAERS Safety Report 6526530-4 (Version None)
Quarter: 2009Q4

REPORT INFORMATION
  Report Type: 
  Country: None (occurrence: None)
  Receive Date: 20091229
  Receipt Date: 20091215
  Transmission Date: 20100525
  Serious: Yes (Other)
  Sender: FDA-Public Use
  Company Number: 8037896

PATIENT
  Sex: Female

DRUGS (3)
  1. KEPPRA [Suspect]
     Indication: EPILEPSY
     Dosage: (250 MG, DOSE FREQ.: DAILY), (750 MG, DOSE FREQ.: DAILY), (3000 MG, DOSE FREQ.: DAILY ORAL)
     Route: 048
     Dates: start: 20080923, end: 20081009
  2. KEPPRA [Suspect]
     Indication: EPILEPSY
     Dosage: (250 MG, DOSE FREQ.: DAILY), (750 MG, DOSE FREQ.: DAILY), (3000 MG, DOSE FREQ.: DAILY ORAL)
     Route: 048
     Dates: start: 20081010
  3. KEPPRA [Suspect]
     Indication: EPILEPSY
     Dosage: (250 MG, DOSE FREQ.: DAILY), (750 MG, DOSE FREQ.: DAILY), (3000 MG, DOSE FREQ.: DAILY ORAL)
     Route: 048
     Dates: start: 20090201

REACTIONS (12)
  - BACK PAIN [None]
  - BREECH PRESENTATION [None]
  - CAESAREAN SECTION [None]
  - DRUG EXPOSURE DURING PREGNANCY [None]
  - ERYTHROBLASTOSIS [None]
  - GRAND MAL CONVULSION [None]
  - NO THERAPEUTIC RESPONSE [None]
  - PLACENTAL DISORDER [None]
  - PREGNANCY [None]
  - PREMATURE LABOUR [None]
  - ROAD TRAFFIC ACCIDENT [None]
  - STILLBIRTH [None]
